FAERS Safety Report 16753683 (Version 1)
Quarter: 2019Q3

REPORT INFORMATION
  Report Type: Spontaneous
  Country: US (occurrence: US)
  Receive Date: 20190710
  Receipt Date: 20190710
  Transmission Date: 20191005
  Serious: No
  Sender: FDA-Public Use
  Company Number: None

PATIENT
  Age: 64 Year
  Sex: Female

DRUGS (1)
  1. TALTZ [Suspect]
     Active Substance: IXEKIZUMAB
     Indication: PSORIASIS
     Dosage: ?          OTHER FREQUENCY:WK12THEN EVRY 4WKS;?
     Route: 058
     Dates: start: 201801

REACTIONS (4)
  - Liver disorder [None]
  - Cardiac disorder [None]
  - Lung disorder [None]
  - Therapy cessation [None]
